FAERS Safety Report 9702118 (Version 1)
Quarter: 2013Q4

REPORT INFORMATION
  Report Type: Spontaneous
  Country: US (occurrence: US)
  Receive Date: 20131121
  Receipt Date: 20131121
  Transmission Date: 20140711
  Serious: No
  Sender: FDA-Public Use
  Company Number: US-MYLANLABS-2012S1025035

PATIENT
  Sex: Male

DRUGS (4)
  1. TRIAMTERENE AND HYDROCHLOROTHIAZIDE TABLETS, USP [Suspect]
     Indication: BLOOD PRESSURE INCREASED
     Route: 048
     Dates: start: 2008, end: 20121129
  2. ZETIA [Concomitant]
     Indication: BLOOD CHOLESTEROL INCREASED
  3. GEMFIBROZIL [Concomitant]
     Indication: BLOOD CHOLESTEROL INCREASED
  4. LIPITOR [Concomitant]
     Indication: BLOOD CHOLESTEROL INCREASED
     Dosage: DISCONTINUED YEARS AGO DUE TO SHOULDER PAIN

REACTIONS (3)
  - Genital rash [Recovering/Resolving]
  - Reaction to drug excipients [Not Recovered/Not Resolved]
  - Vision blurred [Recovered/Resolved]
